FAERS Safety Report 7091155-1 (Version None)
Quarter: 2010Q4

REPORT INFORMATION
  Report Type: 
  Country: None (occurrence: None)
  Receive Date: 20101105
  Receipt Date: 20101105
  Transmission Date: 20110411
  Serious: Yes (Other)
  Sender: FDA-Public Use
  Company Number: None

PATIENT
  Age: 49 Year
  Sex: Female
  Weight: 61.8 kg

DRUGS (3)
  1. SERTRALINE HYDROCHLORIDE [Suspect]
     Indication: ANXIETY
     Dosage: 100 MG ONCE DAILY ORAL SEVERAL YEARS
     Route: 048
  2. SERTRALINE HYDROCHLORIDE [Suspect]
     Indication: DEPRESSION
     Dosage: 100 MG ONCE DAILY ORAL SEVERAL YEARS
     Route: 048
  3. GABAPENTIN [Concomitant]

REACTIONS (3)
  - CHEMICAL BURN OF RESPIRATORY TRACT [None]
  - FOREIGN BODY [None]
  - PRODUCT LABEL ISSUE [None]
